FAERS Safety Report 23115733 (Version 1)
Quarter: 2023Q4

REPORT INFORMATION
  Report Type: Spontaneous
  Country: CN (occurrence: CN)
  Receive Date: 20231027
  Receipt Date: 20231027
  Transmission Date: 20240109
  Serious: Yes (Hospitalization)
  Sender: FDA-Public Use
  Company Number: CN-Merck Healthcare KGaA-2023482156

PATIENT
  Age: 67 Year
  Sex: Male
  Weight: 76 kg

DRUGS (4)
  1. ERBITUX [Suspect]
     Active Substance: CETUXIMAB
     Indication: Malignant palate neoplasm
     Dosage: 900 MG, UNK
     Route: 041
     Dates: start: 20230710
  2. PACLITAXEL [Suspect]
     Active Substance: PACLITAXEL
     Indication: Malignant palate neoplasm
     Dosage: 350 MG, DAILY
     Route: 041
     Dates: start: 20230710, end: 20230710
  3. CISPLATIN [Suspect]
     Active Substance: CISPLATIN
     Indication: Malignant palate neoplasm
     Dosage: 105 MG, DAILY
     Route: 041
     Dates: start: 20230710, end: 20230710
  4. BLEOMYCIN HYDROCHLORIDE [Suspect]
     Active Substance: BLEOMYCIN HYDROCHLORIDE
     Indication: Malignant palate neoplasm
     Dosage: 8 MG, DAILY
     Route: 041
     Dates: start: 20230710, end: 20230714

REACTIONS (1)
  - Myelosuppression [Recovering/Resolving]

NARRATIVE: CASE EVENT DATE: 20230719
